FAERS Safety Report 17568665 (Version 1)
Quarter: 2020Q1

REPORT INFORMATION
  Report Type: Spontaneous
  Country: CN (occurrence: CN)
  Receive Date: 20200320
  Receipt Date: 20200320
  Transmission Date: 20200409
  Serious: Yes (Other)
  Sender: FDA-Public Use
  Company Number: CN-BAXTER-2020BAX006144

PATIENT
  Age: 50 Year
  Sex: Female
  Weight: 57 kg

DRUGS (12)
  1. FAMAXIN (EPIRUBICIN HYDROCHLORIDE) [Suspect]
     Active Substance: EPIRUBICIN HYDROCHLORIDE
     Dosage: TEC, CYCLE 6, FAMAXIN 120 MG + 0.9% NS 250 ML
     Route: 041
     Dates: start: 20200114, end: 20200123
  2. SODIUM CHLORIDE. [Suspect]
     Active Substance: SODIUM CHLORIDE
     Dosage: TEC, CYCLE 6, TAXOTERE 120 MG + 0.9% NS 100 ML
     Route: 041
     Dates: start: 20200114, end: 20200123
  3. 0.9% SODIUM CHLORIDE INJECTION [Suspect]
     Active Substance: SODIUM CHLORIDE
     Dosage: TEC, CYCLE 6, FAMAXIN OF 120 MG + 0.9% NS
     Route: 041
     Dates: start: 20200114, end: 20200123
  4. SODIUM CHLORIDE. [Suspect]
     Active Substance: SODIUM CHLORIDE
     Dosage: TEC, CYCLE 1-5, TAXOTERE + 0.9% NS
     Route: 041
  5. ENDOXAN [Suspect]
     Active Substance: CYCLOPHOSPHAMIDE
     Indication: INVASIVE BREAST CARCINOMA
     Dosage: TEC, CYCLE 1-5, ENDOXAN + 0.9% NS
     Route: 041
  6. ENDOXAN [Suspect]
     Active Substance: CYCLOPHOSPHAMIDE
     Dosage: TEC, CYCLE 6, ENDOXAN 0.8 G + 0.9% NS 250 ML
     Route: 041
     Dates: start: 20200114, end: 20200123
  7. FAMAXIN (EPIRUBICIN HYDROCHLORIDE) [Suspect]
     Active Substance: EPIRUBICIN HYDROCHLORIDE
     Indication: INVASIVE BREAST CARCINOMA
     Dosage: TEC, CYCLE 1-5, FAMAXIN + 0.9% NS
     Route: 041
  8. TAXOTERE [Suspect]
     Active Substance: DOCETAXEL
     Indication: INVASIVE BREAST CARCINOMA
     Dosage: TEC, CYCLE 1-5, TAXOTERE + 0.9% NS
     Route: 041
  9. SODIUM CHLORIDE. [Suspect]
     Active Substance: SODIUM CHLORIDE
     Indication: MEDICATION DILUTION
     Dosage: TEC, CYCLE 1-5, ENDOXAN + 0.9% NS
     Route: 041
  10. TAXOTERE [Suspect]
     Active Substance: DOCETAXEL
     Dosage: TEC, CYCLE 6, TAXOTERE 120 MG + 0.9% NS 100 ML
     Route: 041
     Dates: start: 20200114, end: 20200123
  11. SODIUM CHLORIDE. [Suspect]
     Active Substance: SODIUM CHLORIDE
     Dosage: TEC, CYCLE 6, ENDOXAN 0.8 G + 0.9% NS 250 ML
     Route: 041
     Dates: start: 20200114, end: 20200123
  12. 0.9% SODIUM CHLORIDE INJECTION [Suspect]
     Active Substance: SODIUM CHLORIDE
     Indication: MEDICATION DILUTION
     Dosage: TEC, 1-5 CYCLES, FAMAXIN + 0.9% NS
     Route: 041

REACTIONS (3)
  - White blood cell count decreased [Recovering/Resolving]
  - Bone marrow failure [Recovering/Resolving]
  - Neutropenia [Recovering/Resolving]

NARRATIVE: CASE EVENT DATE: 202001
